FAERS Safety Report 7820512 (Version 29)
Quarter: 2015Q2

REPORT INFORMATION
  Report Type: Report from Study
  Country: CA (occurrence: CA)
  Receive Date: 20110221
  Receipt Date: 20150602
  Transmission Date: 20150821
  Serious: Yes (Other)
  Sender: FDA-Public Use
  Company Number: PHHY2010CA08786

PATIENT
  Age: 71 Year
  Sex: Female

DRUGS (2)
  1. SANDOSTATIN LAR DEPOT [Suspect]
     Active Substance: OCTREOTIDE ACETATE
     Indication: CARCINOID TUMOUR
     Dosage: 20 MG, EVERY 4 WEEKS
     Route: 030
     Dates: start: 20060220, end: 20080827
  2. SANDOSTATIN LAR DEPOT [Suspect]
     Active Substance: OCTREOTIDE ACETATE
     Dosage: 20 MG, EVERY 4 WEEKS
     Route: 030

REACTIONS (12)
  - Injection site mass [Unknown]
  - Musculoskeletal pain [Unknown]
  - Influenza [Unknown]
  - Alopecia [Unknown]
  - Injection site pain [Unknown]
  - Hair growth abnormal [Unknown]
  - Gastroenteritis [Unknown]
  - Blood pressure diastolic decreased [Unknown]
  - Blood pressure increased [Unknown]
  - Injection site induration [Unknown]
  - Vitamin B12 deficiency [Unknown]
  - Constipation [Unknown]

NARRATIVE: CASE EVENT DATE: 20150526
